FAERS Safety Report 9427063 (Version 2)
Quarter: 2013Q3

REPORT INFORMATION
  Report Type: Report from Study
  Country: JP (occurrence: JP)
  Receive Date: 20130730
  Receipt Date: 20130805
  Transmission Date: 20140515
  Serious: Yes (Death)
  Sender: FDA-Public Use
  Company Number: JP-ELI_LILLY_AND_COMPANY-JP201307009231

PATIENT
  Age: 39 Year
  Sex: Female

DRUGS (1)
  1. TADALAFIL [Suspect]
     Indication: EISENMENGER^S SYNDROME
     Dosage: 20 MG, UNK
     Dates: start: 20120508, end: 20130326

REACTIONS (1)
  - Eisenmenger^s syndrome [Fatal]
